FAERS Safety Report 22180071 (Version 1)
Quarter: 2023Q2

REPORT INFORMATION
  Report Type: Spontaneous
  Country: DE (occurrence: DE)
  Receive Date: 20230406
  Receipt Date: 20230406
  Transmission Date: 20230722
  Serious: Yes (Other)
  Sender: FDA-Public Use
  Company Number: DE-ABBVIE-4706468

PATIENT
  Age: 56 Year
  Sex: Female
  Weight: 71 kg

DRUGS (10)
  1. ADALIMUMAB [Suspect]
     Active Substance: ADALIMUMAB
     Indication: Psoriatic arthropathy
     Dosage: 40 MILLIGRAM, Q14D
     Route: 058
  2. ADALIMUMAB [Suspect]
     Active Substance: ADALIMUMAB
     Dosage: 40 MILLIGRAM, Q10D
     Route: 058
  3. UPADACITINIB [Suspect]
     Active Substance: UPADACITINIB
     Indication: Psoriatic arthropathy
     Dosage: UNK
     Route: 048
  4. SULFASALAZINE DELAYED-RELEASE [Concomitant]
     Active Substance: SULFASALAZINE
     Indication: Psoriatic arthropathy
     Dosage: UNK
  5. CHOLESTYRAMINE [Concomitant]
     Active Substance: CHOLESTYRAMINE
     Indication: Product used for unknown indication
     Dosage: 4 GRAM, QD
  6. PANTOPRAZOLE SODIUM [Concomitant]
     Active Substance: PANTOPRAZOLE SODIUM
     Indication: Product used for unknown indication
     Dosage: 20 MILLIGRAM
  7. CREON [Concomitant]
     Active Substance: PANCRELIPASE AMYLASE\PANCRELIPASE LIPASE\PANCRELIPASE PROTEASE
     Indication: Product used for unknown indication
     Dosage: 20000 DOSAGE FORM
  8. MESALAMINE [Concomitant]
     Active Substance: MESALAMINE
     Indication: Psoriatic arthropathy
     Dosage: UNK
  9. CHOLECALCIFEROL [Concomitant]
     Active Substance: CHOLECALCIFEROL
     Indication: Product used for unknown indication
     Dosage: 1000 INTERNATIONAL UNIT, QD
  10. INSULIN NOS [Concomitant]
     Active Substance: INSULIN NOS
     Indication: Product used for unknown indication
     Dosage: PUMP

REACTIONS (14)
  - Hip surgery [Unknown]
  - Crohn^s disease [Unknown]
  - Gastrointestinal erosion [Unknown]
  - Enteritis [Unknown]
  - Off label use [Recovered/Resolved]
  - Hidradenitis [Not Recovered/Not Resolved]
  - Erythema [Recovered/Resolved]
  - Exostosis [Unknown]
  - Enteritis [Unknown]
  - Tendon pain [Recovering/Resolving]
  - Diarrhoea [Unknown]
  - Arthralgia [Unknown]
  - Drug ineffective [Unknown]
  - Tendonitis [Recovering/Resolving]
